FAERS Safety Report 10005141 (Version 1)
Quarter: 2014Q1

REPORT INFORMATION
  Report Type: Spontaneous
  Country: US (occurrence: US)
  Receive Date: 20140312
  Receipt Date: 20140312
  Transmission Date: 20141002
  Serious: No
  Sender: FDA-Public Use
  Company Number: US-009507513-1403USA003431

PATIENT
  Age: 34 Year
  Sex: Male

DRUGS (1)
  1. PROPECIA [Suspect]
     Dosage: UNK
     Route: 048
     Dates: start: 200212

REACTIONS (2)
  - Sexual dysfunction [Not Recovered/Not Resolved]
  - Erectile dysfunction [Not Recovered/Not Resolved]
